FAERS Safety Report 6916010-6 (Version None)
Quarter: 2010Q3

REPORT INFORMATION
  Report Type: 
  Country: None (occurrence: None)
  Receive Date: 20100810
  Receipt Date: 20100726
  Transmission Date: 20110219
  Serious: Yes (Other)
  Sender: FDA-Public Use
  Company Number: BR-MEDIMMUNE-MEDI-0011459

PATIENT
  Sex: Male
  Weight: 3.05 kg

DRUGS (2)
  1. SYNAGIS [Suspect]
     Dates: start: 20100101, end: 20100101
  2. SYNAGIS [Suspect]
     Indication: BRONCHOPULMONARY DYSPLASIA

REACTIONS (4)
  - CORONARY ARTERY DISEASE [None]
  - GASTROOESOPHAGEAL REFLUX DISEASE [None]
  - INFECTION [None]
  - TRANSFUSION [None]
